FAERS Safety Report 7927720-6 (Version None)
Quarter: 2011Q4

REPORT INFORMATION
  Report Type: 
  Country: None (occurrence: None)
  Receive Date: 20111116
  Receipt Date: 20111108
  Transmission Date: 20120403
  Serious: Yes (Death)
  Sender: FDA-Public Use
  Company Number: CIP-2011-00939

PATIENT

DRUGS (3)
  1. CARBOPLATIN [Suspect]
     Indication: NON-SMALL CELL LUNG CANCER
     Dosage: AREA UNDER THE CURVE 6 (DAY 1 EVERY 3 WEEKS)
  2. DOCETAXEL [Suspect]
     Indication: NON-SMALL CELL LUNG CANCER
     Dosage: (75 MILLIGRAM/MILLILITERS)
  3. LEVOFLOXACIN [Suspect]
     Indication: INFECTION
     Dosage: (500 MG,ON DAYS 5 TO 11),ORAL
     Route: 048

REACTIONS (1)
  - INFECTION [None]
